FAERS Safety Report 11437270 (Version 1)
Quarter: 2015Q3

REPORT INFORMATION
  Report Type: Spontaneous
  Country: US (occurrence: US)
  Receive Date: 20150821
  Receipt Date: 20150821
  Transmission Date: 20151125
  Serious: No
  Sender: FDA-Public Use
  Company Number: US-ELI_LILLY_AND_COMPANY-US200703004004

PATIENT
  Sex: Female

DRUGS (2)
  1. CYMBALTA [Suspect]
     Active Substance: DULOXETINE HYDROCHLORIDE
     Dosage: 20 MG, UNK
     Dates: end: 20070306
  2. CYMBALTA [Suspect]
     Active Substance: DULOXETINE HYDROCHLORIDE
     Indication: DEPRESSION
     Dosage: 30 MG, UNK
     Dates: start: 200609, end: 20070305

REACTIONS (19)
  - Dizziness [Unknown]
  - Withdrawal syndrome [Unknown]
  - Menstrual disorder [Unknown]
  - Weight increased [Unknown]
  - Paraesthesia [Recovering/Resolving]
  - Acute stress disorder [Unknown]
  - Hunger [Unknown]
  - Feeling abnormal [Unknown]
  - Suicidal ideation [Recovered/Resolved]
  - Hypoaesthesia [Recovering/Resolving]
  - Headache [Unknown]
  - Paraesthesia [Unknown]
  - Self esteem decreased [Unknown]
  - Nasopharyngitis [Unknown]
  - Irritable bowel syndrome [Not Recovered/Not Resolved]
  - Pain in extremity [Recovering/Resolving]
  - Irritability [Unknown]
  - Nausea [Unknown]
  - Tinnitus [Unknown]

NARRATIVE: CASE EVENT DATE: 2006
